FAERS Safety Report 24737333 (Version 2)
Quarter: 2024Q4

REPORT INFORMATION
  Report Type: Spontaneous
  Country: FR (occurrence: FR)
  Receive Date: 20241216
  Receipt Date: 20241220
  Transmission Date: 20250115
  Serious: No
  Sender: TOLMAR
  Company Number: FR-RECORDATI-2024008866

PATIENT
  Sex: Male

DRUGS (3)
  1. ELIGARD [Suspect]
     Active Substance: LEUPROLIDE ACETATE
     Indication: Prostate cancer
     Dosage: 45 MILLIGRAM
  2. ELIGARD [Suspect]
     Active Substance: LEUPROLIDE ACETATE
     Dosage: 45 MILLIGRAM
  3. ELIGARD [Suspect]
     Active Substance: LEUPROLIDE ACETATE
     Indication: Prostate cancer
     Dosage: UNK

REACTIONS (5)
  - Presyncope [Recovered/Resolved]
  - Product preparation error [Recovered/Resolved]
  - Product administration error [Recovered/Resolved]
  - Dyskinesia [Recovered/Resolved]
  - Malaise [Recovered/Resolved]
